FAERS Safety Report 21672019 (Version 1)
Quarter: 2022Q4

REPORT INFORMATION
  Report Type: Report from Study
  Country: US (occurrence: US)
  Receive Date: 20221202
  Receipt Date: 20221202
  Transmission Date: 20230113
  Serious: No
  Sender: FDA-Public Use
  Company Number: US-ZOGENIX INTERNATIONAL LIMITED-ZX008-2017-00099

PATIENT
  Age: 11 Year
  Sex: Female
  Weight: 32 kg

DRUGS (22)
  1. FENFLURAMINE HYDROCHLORIDE [Suspect]
     Active Substance: FENFLURAMINE HYDROCHLORIDE
     Indication: Severe myoclonic epilepsy of infancy
     Dosage: UNK
     Route: 048
     Dates: start: 20170531
  2. FENFLURAMINE HYDROCHLORIDE [Suspect]
     Active Substance: FENFLURAMINE HYDROCHLORIDE
     Indication: Severe myoclonic epilepsy of infancy
     Dosage: UNK
     Route: 048
     Dates: start: 20170531
  3. FENFLURAMINE HYDROCHLORIDE [Suspect]
     Active Substance: FENFLURAMINE HYDROCHLORIDE
     Indication: Severe myoclonic epilepsy of infancy
     Dosage: UNK
     Route: 048
     Dates: start: 20170531
  4. PLACEBO [Suspect]
     Active Substance: UNSPECIFIED INGREDIENT
     Indication: Severe myoclonic epilepsy of infancy
     Dosage: UNK
     Route: 048
     Dates: start: 20170531
  5. MULTIVITAMIN IRON [Concomitant]
     Indication: Supplementation therapy
     Dosage: UNK, QD
     Route: 048
     Dates: start: 2009
  6. MULTIVITAMIN IRON [Concomitant]
     Indication: Prophylaxis
  7. CALCIUM SUPPLEMENT WITH VITAMIN D [Concomitant]
     Indication: Supplementation therapy
     Dosage: UNK, QD
     Route: 048
     Dates: start: 2009
  8. CALCIUM SUPPLEMENT WITH VITAMIN D [Concomitant]
     Indication: Prophylaxis
  9. B COMPLEX [AMINOBENZOIC ACID;BIOTIN;CALCIUM PANTOTHENATE;CHOLINE BITAR [Concomitant]
     Indication: Supplementation therapy
     Dosage: UNK, QD
     Route: 048
     Dates: start: 2009
  10. B COMPLEX [AMINOBENZOIC ACID;BIOTIN;CALCIUM PANTOTHENATE;CHOLINE BITAR [Concomitant]
     Indication: Prophylaxis
  11. VITAMIN B6 [Concomitant]
     Active Substance: PYRIDOXINE HYDROCHLORIDE
     Indication: Supplementation therapy
     Dosage: UNK, QD
     Route: 048
     Dates: start: 2009
  12. VITAMIN B6 [Concomitant]
     Active Substance: PYRIDOXINE HYDROCHLORIDE
     Indication: Prophylaxis
  13. ASCORBIC ACID [Concomitant]
     Active Substance: ASCORBIC ACID
     Indication: Prophylaxis
     Dosage: 500 MG MILLIGRAM(S), QD
     Route: 048
     Dates: start: 2009
  14. ERGOCALCIFEROL [Concomitant]
     Active Substance: ERGOCALCIFEROL
     Indication: Prophylaxis
     Dosage: 1000 UNITS, UNK
     Route: 048
     Dates: start: 2009
  15. TAURINE [Concomitant]
     Active Substance: TAURINE
     Indication: Prophylaxis
     Dosage: 250 MG MILLIGRAM(S), BID
     Route: 048
     Dates: start: 2009
  16. SELENIUM [Concomitant]
     Active Substance: SELENIUM
     Indication: Prophylaxis
     Dosage: 100 MG MILLIGRAM(S), QD
     Route: 048
     Dates: start: 2009
  17. ZINC [Concomitant]
     Active Substance: ZINC
     Indication: Prophylaxis
     Dosage: 30 MG MILLIGRAM(S), QD
     Route: 048
     Dates: start: 2009
  18. CLONAZEPAM [Concomitant]
     Active Substance: CLONAZEPAM
     Indication: Epilepsy
     Dosage: 0-25 MILLGRAMS), PRN
     Dates: start: 200906
  19. MIDAZOLAM [Concomitant]
     Active Substance: MIDAZOLAM
     Indication: Epilepsy
     Dosage: 10 MG MILLIGRAM(S), PRN
     Route: 045
     Dates: start: 201006
  20. KEPPRA [Concomitant]
     Active Substance: LEVETIRACETAM
     Indication: Seizure
     Dosage: 425 MG MILLIGRAM(S), BID
     Route: 048
     Dates: start: 200609
  21. TOPAMAX [Concomitant]
     Active Substance: TOPIRAMATE
     Indication: Seizure
     Dosage: 50 MG MILLIGRAM(S), BID
     Route: 048
     Dates: start: 200706
  22. RUFINAMIDE [Concomitant]
     Active Substance: RUFINAMIDE
     Indication: Seizure
     Dosage: 800 MG MILLIGRAM(S), QD
     Route: 048
     Dates: start: 200812

REACTIONS (1)
  - Heart rate increased [Recovered/Resolved]

NARRATIVE: CASE EVENT DATE: 20170615
